FAERS Safety Report 20876037 (Version 2)
Quarter: 2023Q2

REPORT INFORMATION
  Report Type: Report from Study
  Country: GB (occurrence: GB)
  Receive Date: 20220526
  Receipt Date: 20230606
  Transmission Date: 20230722
  Serious: Yes (Other)
  Sender: FDA-Public Use
  Company Number: GB-SUN PHARMACEUTICAL INDUSTRIES LTD-2022RR-337986

PATIENT
  Sex: Female

DRUGS (2)
  1. ETORICOXIB [Suspect]
     Active Substance: ETORICOXIB
     Indication: Headache
     Dosage: 120 MILLIGRAM, UNK
     Route: 065
  2. INDOMETHACIN [Suspect]
     Active Substance: INDOMETHACIN
     Indication: Headache
     Dosage: 250 MILLIGRAM, UNK
     Route: 065

REACTIONS (3)
  - Duodenal ulcer [Unknown]
  - Dyspepsia [Unknown]
  - Dyspepsia [Unknown]
